FAERS Safety Report 5476029-1 (Version None)
Quarter: 2007Q4

REPORT INFORMATION
  Report Type: 
  Country: None (occurrence: None)
  Receive Date: 20071003
  Receipt Date: 20071001
  Transmission Date: 20080405
  Serious: Yes (Hospitalization)
  Sender: FDA-Public Use
  Company Number: PHEH2007US11522

PATIENT
  Age: 50 Year
  Sex: Female

DRUGS (4)
  1. LOTREL [Concomitant]
  2. CLONIDINE [Concomitant]
  3. MINOXIDIL [Concomitant]
  4. TEKTURNA [Suspect]
     Dosage: 300 MG, QD
     Route: 048

REACTIONS (2)
  - INFLAMMATION [None]
  - PAIN [None]
